FAERS Safety Report 19944926 (Version 1)
Quarter: 2021Q4

REPORT INFORMATION
  Report Type: Spontaneous
  Country: US (occurrence: US)
  Receive Date: 20211012
  Receipt Date: 20211012
  Transmission Date: 20220303
  Serious: Yes (Other)
  Sender: FDA-Public Use
  Company Number: US-HIKMA PHARMACEUTICALS USA INC.-US-H14001-21-04344

PATIENT
  Age: 54 Year
  Sex: Female

DRUGS (4)
  1. HYDRALAZINE [Suspect]
     Active Substance: HYDRALAZINE HYDROCHLORIDE
     Indication: Hypertension
     Route: 065
  2. HYDRALAZINE [Suspect]
     Active Substance: HYDRALAZINE HYDROCHLORIDE
     Route: 065
  3. TRIAMTERENE [Suspect]
     Active Substance: TRIAMTERENE
     Indication: Hypertension
     Dosage: 200 MG DAILY
     Route: 065
  4. LOSARTAN [Suspect]
     Active Substance: LOSARTAN
     Indication: Hypertension
     Dosage: 100 MG DAILY
     Route: 065

REACTIONS (11)
  - Drug-induced liver injury [Unknown]
  - Fatigue [Unknown]
  - Rhinorrhoea [Unknown]
  - Myalgia [Unknown]
  - Cough [Unknown]
  - Pyrexia [Unknown]
  - Chills [Unknown]
  - Tachycardia [Unknown]
  - Diarrhoea [Unknown]
  - Nausea [Unknown]
  - Headache [Unknown]
